FAERS Safety Report 5175429-7 (Version None)
Quarter: 2006Q4

REPORT INFORMATION
  Report Type: 
  Country: None (occurrence: None)
  Receive Date: 20061215
  Receipt Date: 20061019
  Transmission Date: 20070319
  Serious: Yes (Hospitalization, Other)
  Sender: FDA-Public Use
  Company Number: US-BRISTOL-MYERS SQUIBB COMPANY-13547328

PATIENT
  Age: 61 Year
  Sex: Female

DRUGS (3)
  1. ORENCIA [Suspect]
     Indication: RHEUMATOID ARTHRITIS
     Route: 042
     Dates: start: 20060913
  2. METHOTREXATE [Suspect]
  3. MEDROL [Concomitant]
     Dates: start: 20060801

REACTIONS (2)
  - BRONCHITIS [None]
  - PNEUMONITIS [None]
